FAERS Safety Report 6888456-6 (Version None)
Quarter: 2010Q3

REPORT INFORMATION
  Report Type: 
  Country: None (occurrence: None)
  Receive Date: 20100730
  Receipt Date: 20100722
  Transmission Date: 20110219
  Serious: Yes (Hospitalization)
  Sender: FDA-Public Use
  Company Number: NL-ABBOTT-10P-114-0659300-00

PATIENT
  Sex: Female
  Weight: 85 kg

DRUGS (8)
  1. LEUPROLIDE ACETATE [Suspect]
     Indication: BREAST CANCER
     Route: 058
     Dates: start: 20090901
  2. TAMOXIFEN CITRATE [Concomitant]
     Indication: BREAST CANCER
     Route: 048
     Dates: start: 20090901
  3. PANTAZOL [Concomitant]
     Indication: PROPHYLAXIS AGAINST GASTROINTESTINAL ULCER
     Route: 048
     Dates: start: 20040101
  4. DIOVAN [Concomitant]
     Indication: HYPERTENSION
     Route: 048
     Dates: start: 20070101
  5. THYRAX [Concomitant]
     Indication: PRODUCT USED FOR UNKNOWN INDICATION
     Route: 048
     Dates: start: 20040101
  6. THYRAX [Concomitant]
     Route: 048
     Dates: start: 20040101
  7. ABILIFY [Concomitant]
     Indication: PSYCHOTIC DISORDER
     Route: 048
  8. EFFEXOR [Concomitant]
     Indication: DEPRESSION
     Dosage: 3-75MG TABLETS DAILY
     Route: 048

REACTIONS (8)
  - BREAST INFLAMMATION [None]
  - CARDIAC FAILURE [None]
  - CARDIAC FUNCTION TEST ABNORMAL [None]
  - HOT FLUSH [None]
  - OPEN WOUND [None]
  - PLEURAL EFFUSION [None]
  - SEPSIS [None]
  - WEIGHT INCREASED [None]
